FAERS Safety Report 6482650-4 (Version None)
Quarter: 2009Q4

REPORT INFORMATION
  Report Type: 
  Country: None (occurrence: None)
  Receive Date: 20091209
  Receipt Date: 20091201
  Transmission Date: 20100525
  Serious: Yes (Death)
  Sender: FDA-Public Use
  Company Number: US-BIOGENIDEC-2009BI037299

PATIENT
  Age: 50 Year
  Sex: Male

DRUGS (2)
  1. AVONEX [Suspect]
     Indication: DRUG USE FOR UNKNOWN INDICATION
     Route: 030
     Dates: start: 19950101
  2. AVONEX [Suspect]
     Route: 030
     Dates: start: 20040101

REACTIONS (4)
  - DEPRESSION [None]
  - FACIAL PAIN [None]
  - FATIGUE [None]
  - RESPIRATORY FAILURE [None]
